FAERS Safety Report 7531446-0 (Version None)
Quarter: 2011Q2

REPORT INFORMATION
  Report Type: 
  Country: None (occurrence: None)
  Receive Date: 20110608
  Receipt Date: 20110530
  Transmission Date: 20111010
  Serious: Yes (Hospitalization, Disabling)
  Sender: FDA-Public Use
  Company Number: BR-ASTRAZENECA-2011SE33357

PATIENT
  Age: 32 Year
  Sex: Male

DRUGS (8)
  1. DEPAKOTE ER [Concomitant]
     Route: 048
  2. DIAZEPAM [Concomitant]
     Route: 048
  3. CLONAZEPAM [Concomitant]
     Route: 048
  4. SEROQUEL XR [Suspect]
     Route: 048
     Dates: start: 20110501
  5. PANTOPRAZOLE [Concomitant]
     Route: 048
  6. SEROQUEL XR [Suspect]
     Indication: ANXIETY
     Route: 048
     Dates: start: 20110501
  7. SEROQUEL XR [Suspect]
     Indication: DEPRESSION
     Route: 048
     Dates: start: 20110501
  8. SEROQUEL XR [Suspect]
     Route: 048
     Dates: start: 20110501

REACTIONS (8)
  - BLADDER CATHETERISATION [None]
  - DRUG PRESCRIBING ERROR [None]
  - URINARY RETENTION [None]
  - AKATHISIA [None]
  - ROAD TRAFFIC ACCIDENT [None]
  - FRACTURED COCCYX [None]
  - RESTLESSNESS [None]
  - NERVOUSNESS [None]
